FAERS Safety Report 5943769-7 (Version None)
Quarter: 2008Q4

REPORT INFORMATION
  Report Type: 
  Country: None (occurrence: None)
  Receive Date: 20081106
  Receipt Date: 20080929
  Transmission Date: 20090506
  Serious: No
  Sender: FDA-Public Use
  Company Number: US-BAYER-200834633NA

PATIENT
  Age: 20 Year
  Sex: Female
  Weight: 91 kg

DRUGS (2)
  1. ULTRAVIST 370 [Suspect]
     Indication: COMPUTERISED TOMOGRAM THORAX
     Dosage: TOTAL DAILY DOSE: 100 ML  UNIT DOSE: 500 ML
     Route: 042
     Dates: start: 20080929, end: 20080929
  2. METFORMIN HCL [Concomitant]

REACTIONS (4)
  - FLUSHING [None]
  - NAUSEA [None]
  - PRURITUS [None]
  - URTICARIA [None]
